FAERS Safety Report 9628845 (Version 4)
Quarter: 2014Q3

REPORT INFORMATION
  Report Type: Report from Study
  Country: UY (occurrence: UY)
  Receive Date: 20131017
  Receipt Date: 20140930
  Transmission Date: 20150326
  Serious: Yes (Other)
  Sender: FDA-Public Use
  Company Number: UY-ABBVIE-13P-168-1156933-00

PATIENT
  Age: 33 Year
  Sex: Male

DRUGS (2)
  1. HUMIRA [Suspect]
     Active Substance: ADALIMUMAB
     Indication: ANKYLOSING SPONDYLITIS
     Dates: start: 20101029, end: 20130924
  2. OMEPRAZOL [Concomitant]
     Active Substance: OMEPRAZOLE
     Indication: PRODUCT USED FOR UNKNOWN INDICATION

REACTIONS (6)
  - Ankylosing spondylitis [Unknown]
  - Cardiac failure [Recovering/Resolving]
  - Cardiomegaly [Recovering/Resolving]
  - Cardiotoxicity [Unknown]
  - Polymerase chain reaction [Unknown]
  - Congestive cardiomyopathy [Not Recovered/Not Resolved]

NARRATIVE: CASE EVENT DATE: 2013
